FAERS Safety Report 7359873-5 (Version None)
Quarter: 2011Q1

REPORT INFORMATION
  Report Type: 
  Country: None (occurrence: None)
  Receive Date: 20110307
  Receipt Date: 20110218
  Transmission Date: 20110831
  Serious: Yes (Other)
  Sender: FDA-Public Use
  Company Number: 027241

PATIENT
  Sex: Female

DRUGS (1)
  1. KEPPRA [Suspect]
     Dosage: (500 MG BID ORAL)
     Route: 048
     Dates: start: 20090101

REACTIONS (7)
  - DIZZINESS [None]
  - EAR DISORDER [None]
  - BACK PAIN [None]
  - VERTIGO [None]
  - FALL [None]
  - LIPOMA [None]
  - CYSTITIS [None]
